FAERS Safety Report 4187232 (Version 5)
Quarter: 2013Q2

REPORT INFORMATION
  Report Type: Report from Study
  Country: JP (occurrence: JP)
  Receive Date: 20040809
  Receipt Date: 20130429
  Transmission Date: 20140414
  Serious: Yes (Life-Threatening, Other)
  Sender: FDA-Public Use
  Company Number: PHHO2004JP10864

PATIENT
  Age: 62 Year
  Sex: Male
  Weight: 58.9 kg

DRUGS (3)
  1. CGP 57148B [Suspect]
     Indication: GASTROINTESTINAL STROMAL TUMOUR
     Dosage: 400 MG, DAILY
     Route: 048
     Dates: start: 20031217, end: 20051031
  2. CGP 57148B [Suspect]
     Dosage: 400 MG, DAILY
     Route: 048
     Dates: start: 20051203
  3. FOLIAMIN [Concomitant]
     Indication: ANAEMIA
     Dosage: 10 MG, UNK
     Route: 048
     Dates: start: 20041227

REACTIONS (17)
  - Bile duct stone [Not Recovered/Not Resolved]
  - Cholangitis [Recovering/Resolving]
  - Varices oesophageal [Recovered/Resolved]
  - Eosinophil count increased [Recovered/Resolved]
  - Proteinuria [Not Recovered/Not Resolved]
  - Decreased appetite [Recovering/Resolving]
  - Face oedema [Recovered/Resolved]
  - Oedema peripheral [Recovered/Resolved]
  - Pancytopenia [Not Recovered/Not Resolved]
  - Rash [Recovering/Resolving]
  - Blood urea increased [Recovering/Resolving]
  - Blood creatinine increased [Recovering/Resolving]
  - Gamma-glutamyltransferase increased [Unknown]
  - Blood alkaline phosphatase increased [Unknown]
  - Blood bilirubin increased [Unknown]
  - Haemoglobin decreased [Unknown]
  - White blood cell count increased [Unknown]
